FAERS Safety Report 8306362-7 (Version None)
Quarter: 2012Q2

REPORT INFORMATION
  Report Type: 
  Country: None (occurrence: None)
  Receive Date: 20120423
  Receipt Date: 20120413
  Transmission Date: 20120825
  Serious: Yes (Hospitalization, Other)
  Sender: FDA-Public Use
  Company Number: US-MERCK-1103USA00956

PATIENT
  Age: 62 Year
  Sex: Female

DRUGS (5)
  1. FOSAMAX [Suspect]
     Indication: OSTEOPENIA
     Route: 048
     Dates: start: 20020821, end: 20080601
  2. FOSAMAX [Suspect]
     Route: 048
     Dates: start: 20080101, end: 20081001
  3. CALCIUM (UNSPECIFIED) [Concomitant]
     Indication: OSTEOPENIA
     Route: 065
  4. ALENDRONATE SODIUM [Suspect]
     Indication: OSTEOPENIA
     Route: 048
     Dates: start: 20080101
  5. CALCIUM CITRATE [Concomitant]
     Route: 065
     Dates: start: 20000101

REACTIONS (36)
  - ADVERSE EVENT [None]
  - ANXIETY [None]
  - GASTROINTESTINAL TRACT ADENOMA [None]
  - GASTRIC ULCER [None]
  - PROCTITIS [None]
  - TRANSIENT GLOBAL AMNESIA [None]
  - COGNITIVE DISORDER [None]
  - CERVICAL DYSPLASIA [None]
  - FEMUR FRACTURE [None]
  - OSTEOARTHRITIS [None]
  - RIB FRACTURE [None]
  - LYMPHADENOPATHY [None]
  - CHRONIC OBSTRUCTIVE PULMONARY DISEASE [None]
  - HYPERLIPIDAEMIA [None]
  - HYPERCHOLESTEROLAEMIA [None]
  - MOOD ALTERED [None]
  - CREPITATIONS [None]
  - DEVICE FAILURE [None]
  - GASTROOESOPHAGEAL REFLUX DISEASE [None]
  - GASTRITIS [None]
  - MAMMOGRAM ABNORMAL [None]
  - PEPTIC ULCER [None]
  - FRACTURE NONUNION [None]
  - CERVIX INFLAMMATION [None]
  - ARTHRALGIA [None]
  - ARTHRITIS [None]
  - OSTEONECROSIS [None]
  - FALL [None]
  - LIVER FUNCTION TEST ABNORMAL [None]
  - RADICULOPATHY [None]
  - FRACTURE [None]
  - OESOPHAGEAL ULCER [None]
  - HYPONATRAEMIA [None]
  - RAYNAUD'S PHENOMENON [None]
  - LOW TURNOVER OSTEOPATHY [None]
  - DEPRESSION [None]
